FAERS Safety Report 4629364-0 (Version None)
Quarter: 2005Q2

REPORT INFORMATION
  Report Type: 
  Country: None (occurrence: None)
  Receive Date: 20050405
  Receipt Date: 20050329
  Transmission Date: 20051028
  Serious: Yes (Hospitalization)
  Sender: FDA-Public Use
  Company Number: 430002E05ITA

PATIENT
  Age: 24 Year
  Sex: Male

DRUGS (3)
  1. NOVANTRONE [Suspect]
     Indication: ACUTE PROMYELOCYTIC LEUKAEMIA
     Dosage: 18 MG, 1 IN 1 DAYS
     Dates: start: 20041108, end: 20041112
  2. TRETINOIN [Suspect]
     Indication: ACUTE PROMYELOCYTIC LEUKAEMIA
     Dosage: 80 MG, 1 IN 1 DAYS
     Dates: start: 20041108, end: 20041122
  3. ALL OTHER THERAPEUTIC PRODUCTS [Suspect]
     Indication: ACUTE PROMYELOCYTIC LEUKAEMIA

REACTIONS (2)
  - FEBRILE NEUTROPENIA [None]
  - STREPTOCOCCAL BACTERAEMIA [None]
